FAERS Safety Report 10258299 (Version 1)
Quarter: 2014Q2

REPORT INFORMATION
  Report Type: Spontaneous
  Country: US (occurrence: US)
  Receive Date: 20140625
  Receipt Date: 20140625
  Transmission Date: 20141212
  Serious: No
  Sender: FDA-Public Use
  Company Number: US-TEVA-490447USA

PATIENT
  Age: 38 Year
  Sex: Female
  Weight: 66.28 kg

DRUGS (6)
  1. PARAGARD 380A [Suspect]
     Indication: CONTRACEPTION
     Route: 015
     Dates: start: 20140528, end: 20140618
  2. PARAGARD 380A [Suspect]
     Route: 015
     Dates: start: 20140620
  3. FLONASE [Concomitant]
     Indication: HYPERSENSITIVITY
  4. CLONAPIN [Concomitant]
     Indication: ANXIETY
  5. ZYRTEC [Concomitant]
     Indication: HYPERSENSITIVITY
  6. XARELTO [Concomitant]
     Indication: PRODUCT USED FOR UNKNOWN INDICATION

REACTIONS (1)
  - Device expulsion [Recovered/Resolved]
